FAERS Safety Report 5857151-4 (Version None)
Quarter: 2008Q3

REPORT INFORMATION
  Report Type: 
  Country: None (occurrence: None)
  Receive Date: 20080825
  Receipt Date: 20080818
  Transmission Date: 20090109
  Serious: Yes (Other)
  Sender: FDA-Public Use
  Company Number: PHEH2008US07258

PATIENT
  Sex: Male

DRUGS (2)
  1. TRILEPTAL [Suspect]
     Indication: CONVULSION
     Dosage: 225 MG, BID
     Route: 048
     Dates: start: 20080623, end: 20080701
  2. CYPROHEPTADINE HCL [Concomitant]
     Dosage: 2 MG, QHS
     Dates: start: 20080201

REACTIONS (4)
  - ABNORMAL BEHAVIOUR [None]
  - ASTIGMATISM [None]
  - HALLUCINATION [None]
  - INSOMNIA [None]
